FAERS Safety Report 5696458-0 (Version None)
Quarter: 2008Q2

REPORT INFORMATION
  Report Type: 
  Country: None (occurrence: None)
  Receive Date: 20080408
  Receipt Date: 20080331
  Transmission Date: 20081010
  Serious: Yes (Hospitalization)
  Sender: FDA-Public Use
  Company Number: US-BOEHRINGER INGELHEIM GMBH, GERMANY-2008-BP-03606BP

PATIENT
  Age: 92 Year
  Sex: Female

DRUGS (7)
  1. MICARDIS HCT [Suspect]
     Indication: BLOOD PRESSURE INCREASED
     Dates: start: 20060101
  2. WELLBUTRIN [Concomitant]
  3. NEXIUM [Concomitant]
  4. SYNTHROID [Concomitant]
  5. DITROPAN [Concomitant]
  6. NITROFUR [Concomitant]
  7. TRAMADOL HCL [Concomitant]

REACTIONS (1)
  - DEHYDRATION [None]
